FAERS Safety Report 15850160 (Version 4)
Quarter: 2019Q1

REPORT INFORMATION
  Report Type: Report from Study
  Country: US (occurrence: US)
  Receive Date: 20190121
  Receipt Date: 20190306
  Transmission Date: 20190417
  Serious: No
  Sender: FDA-Public Use
  Company Number: US-SA-2019SA014478

PATIENT
  Age: 48 Year
  Sex: Female

DRUGS (12)
  1. MODAFINIL. [Concomitant]
     Active Substance: MODAFINIL
  2. PRILOSEC [Concomitant]
     Active Substance: OMEPRAZOLE MAGNESIUM
  3. ATIVAN [Concomitant]
     Active Substance: LORAZEPAM
  4. BACLOFEN. [Concomitant]
     Active Substance: BACLOFEN
  5. VITAMIN D [Concomitant]
     Active Substance: CHOLECALCIFEROL
  6. DULOXETINE. [Concomitant]
     Active Substance: DULOXETINE
  7. TERIFLUNOMIDE. [Suspect]
     Active Substance: TERIFLUNOMIDE
     Indication: MULTIPLE SCLEROSIS
     Dosage: 14 MG, QD
     Route: 048
  8. ZOLPIDEM [Concomitant]
     Active Substance: ZOLPIDEM\ZOLPIDEM TARTRATE
  9. IBU [Concomitant]
     Active Substance: IBUPROFEN
  10. PRAZOSIN. [Concomitant]
     Active Substance: PRAZOSIN
  11. LEVOTHYROXINE. [Concomitant]
     Active Substance: LEVOTHYROXINE
  12. SEROQUEL [Concomitant]
     Active Substance: QUETIAPINE FUMARATE

REACTIONS (6)
  - Chromaturia [Unknown]
  - Weight increased [Unknown]
  - Memory impairment [Recovering/Resolving]
  - Middle insomnia [Unknown]
  - Cognitive disorder [Recovering/Resolving]
  - Depression [Unknown]

NARRATIVE: CASE EVENT DATE: 201902
